FAERS Safety Report 10553798 (Version 1)
Quarter: 2014Q4

REPORT INFORMATION
  Report Type: Spontaneous
  Country: US (occurrence: None)
  Receive Date: 20141023
  Receipt Date: 20141023
  Transmission Date: 20150529
  Serious: No
  Sender: FDA-Public Use
  Company Number: AP356-01301-SPO-US

PATIENT
  Age: 38 Year
  Sex: Female
  Weight: 70.8 kg

DRUGS (2)
  1. WELLBUTRIN (BUPROPION) [Concomitant]
  2. BELVIQ [Suspect]
     Active Substance: LORCASERIN HYDROCHLORIDE
     Indication: WEIGHT DECREASED
     Dosage: 20  MG, 2 IN 1 D, ORAL
     Route: 048
     Dates: start: 201408

REACTIONS (2)
  - Hunger [None]
  - Weight increased [None]

NARRATIVE: CASE EVENT DATE: 201408
